FAERS Safety Report 23484997 (Version 1)
Quarter: 2024Q1

REPORT INFORMATION
  Report Type: Spontaneous
  Country: NL (occurrence: NL)
  Receive Date: 20240206
  Receipt Date: 20240206
  Transmission Date: 20240410
  Serious: Yes (Hospitalization, Other)
  Sender: FDA-Public Use
  Company Number: NL-TAKEDA-2023TUS102808

PATIENT
  Age: 18 Year
  Sex: Female

DRUGS (35)
  1. DESVENLAFAXINE [Suspect]
     Active Substance: DESVENLAFAXINE
     Indication: Body mass index decreased
     Dosage: UNK
     Route: 065
  2. DESVENLAFAXINE [Suspect]
     Active Substance: DESVENLAFAXINE
     Indication: Anxiety
  3. DESVENLAFAXINE [Suspect]
     Active Substance: DESVENLAFAXINE
     Indication: Attention deficit hyperactivity disorder
  4. DESVENLAFAXINE [Suspect]
     Active Substance: DESVENLAFAXINE
     Indication: Depression
  5. DESVENLAFAXINE [Suspect]
     Active Substance: DESVENLAFAXINE
     Indication: Migraine
  6. METHYLPHENIDATE HYDROCHLORIDE [Suspect]
     Active Substance: METHYLPHENIDATE HYDROCHLORIDE
     Indication: Attention deficit hyperactivity disorder
     Dosage: UNK
     Route: 065
  7. METHYLPHENIDATE HYDROCHLORIDE [Suspect]
     Active Substance: METHYLPHENIDATE HYDROCHLORIDE
     Indication: Anxiety
  8. METHYLPHENIDATE HYDROCHLORIDE [Suspect]
     Active Substance: METHYLPHENIDATE HYDROCHLORIDE
     Indication: Body mass index decreased
  9. METHYLPHENIDATE HYDROCHLORIDE [Suspect]
     Active Substance: METHYLPHENIDATE HYDROCHLORIDE
     Indication: Depression
  10. METHYLPHENIDATE HYDROCHLORIDE [Suspect]
     Active Substance: METHYLPHENIDATE HYDROCHLORIDE
     Indication: Migraine
  11. METOCLOPRAMIDE [Suspect]
     Active Substance: METOCLOPRAMIDE
     Indication: Attention deficit hyperactivity disorder
     Dosage: UNK
     Route: 065
  12. METOCLOPRAMIDE [Suspect]
     Active Substance: METOCLOPRAMIDE
     Indication: Anxiety
  13. METOCLOPRAMIDE [Suspect]
     Active Substance: METOCLOPRAMIDE
     Indication: Body mass index decreased
  14. METOCLOPRAMIDE [Suspect]
     Active Substance: METOCLOPRAMIDE
     Indication: Depression
  15. METOCLOPRAMIDE [Suspect]
     Active Substance: METOCLOPRAMIDE
     Indication: Migraine
  16. ONDANSETRON [Suspect]
     Active Substance: ONDANSETRON
     Indication: Attention deficit hyperactivity disorder
     Dosage: UNK
     Route: 065
  17. ONDANSETRON [Suspect]
     Active Substance: ONDANSETRON
     Indication: Anxiety
  18. ONDANSETRON [Suspect]
     Active Substance: ONDANSETRON
     Indication: Body mass index decreased
  19. ONDANSETRON [Suspect]
     Active Substance: ONDANSETRON
     Indication: Depression
  20. ONDANSETRON [Suspect]
     Active Substance: ONDANSETRON
     Indication: Migraine
  21. RIZATRIPTAN [Suspect]
     Active Substance: RIZATRIPTAN
     Indication: Attention deficit hyperactivity disorder
     Dosage: UNK
     Route: 065
  22. RIZATRIPTAN [Suspect]
     Active Substance: RIZATRIPTAN
     Indication: Anxiety
  23. RIZATRIPTAN [Suspect]
     Active Substance: RIZATRIPTAN
     Indication: Body mass index decreased
  24. RIZATRIPTAN [Suspect]
     Active Substance: RIZATRIPTAN
     Indication: Depression
  25. RIZATRIPTAN [Suspect]
     Active Substance: RIZATRIPTAN
     Indication: Migraine
  26. TOPIRAMATE [Suspect]
     Active Substance: TOPIRAMATE
     Indication: Attention deficit hyperactivity disorder
     Dosage: UNK
     Route: 065
  27. TOPIRAMATE [Suspect]
     Active Substance: TOPIRAMATE
     Indication: Anxiety
  28. TOPIRAMATE [Suspect]
     Active Substance: TOPIRAMATE
     Indication: Body mass index decreased
  29. TOPIRAMATE [Suspect]
     Active Substance: TOPIRAMATE
     Indication: Depression
  30. TOPIRAMATE [Suspect]
     Active Substance: TOPIRAMATE
     Indication: Migraine
  31. HERBALS\TETRAHYDROCANNABINOL UNSPECIFIED [Suspect]
     Active Substance: HERBALS\TETRAHYDROCANNABINOL UNSPECIFIED
     Indication: Migraine
     Dosage: 200 MILLIGRAM
     Route: 048
  32. HERBALS\TETRAHYDROCANNABINOL UNSPECIFIED [Suspect]
     Active Substance: HERBALS\TETRAHYDROCANNABINOL UNSPECIFIED
     Indication: Anxiety
  33. HERBALS\TETRAHYDROCANNABINOL UNSPECIFIED [Suspect]
     Active Substance: HERBALS\TETRAHYDROCANNABINOL UNSPECIFIED
     Indication: Attention deficit hyperactivity disorder
  34. HERBALS\TETRAHYDROCANNABINOL UNSPECIFIED [Suspect]
     Active Substance: HERBALS\TETRAHYDROCANNABINOL UNSPECIFIED
     Indication: Body mass index decreased
  35. HERBALS\TETRAHYDROCANNABINOL UNSPECIFIED [Suspect]
     Active Substance: HERBALS\TETRAHYDROCANNABINOL UNSPECIFIED
     Indication: Depression

REACTIONS (2)
  - Serotonin syndrome [Recovered/Resolved]
  - Off label use [Unknown]
